FAERS Safety Report 7928840-2 (Version None)
Quarter: 2011Q4

REPORT INFORMATION
  Report Type: 
  Country: None (occurrence: None)
  Receive Date: 20111118
  Receipt Date: 20111109
  Transmission Date: 20120403
  Serious: Yes (Other)
  Sender: FDA-Public Use
  Company Number: CA-ROCHE-1005435

PATIENT
  Sex: Male

DRUGS (5)
  1. SINGULAIR [Concomitant]
  2. DESLORATADINE [Concomitant]
  3. XOLAIR [Suspect]
     Indication: ASTHMA
     Route: 058
     Dates: start: 20110812
  4. ALVESCO [Concomitant]
  5. VENTOLIN [Concomitant]

REACTIONS (3)
  - COUGH [None]
  - BLOOD PRESSURE INCREASED [None]
  - DYSPNOEA [None]
